FAERS Safety Report 6388114-0 (Version None)
Quarter: 2009Q4

REPORT INFORMATION
  Report Type: 
  Country: None (occurrence: None)
  Receive Date: 20091001
  Receipt Date: 20091001
  Transmission Date: 20100525
  Serious: Yes (Life-Threatening, Hospitalization, Disabling, Other)
  Sender: FDA-Public Use
  Company Number: None

PATIENT
  Age: 55 Year
  Sex: Female
  Weight: 67.586 kg

DRUGS (5)
  1. AMLODIPINE [Suspect]
     Indication: BLOOD PRESSURE
     Dosage: 5 MG 1 A DAY
     Dates: start: 20060101
  2. AMLODIPINE [Suspect]
     Indication: BLOOD PRESSURE
     Dosage: 5 MG 1 A DAY
     Dates: start: 20070101
  3. AMLODIPINE [Suspect]
     Indication: BLOOD PRESSURE
     Dosage: 5 MG 1 A DAY
     Dates: start: 20080101
  4. CIPROFLOXACIN HYDROCHLORIDE [Suspect]
     Dosage: 500 MG 2 A DAY
  5. AVANDIA [Suspect]
     Dosage: 1 A DAY
     Route: 048

REACTIONS (4)
  - CHEST PAIN [None]
  - JOINT DISLOCATION [None]
  - PROTEIN TOTAL ABNORMAL [None]
  - RENAL DISORDER [None]
